FAERS Safety Report 15323352 (Version 1)
Quarter: 2018Q3

REPORT INFORMATION
  Report Type: Report from Study
  Country: CA (occurrence: CA)
  Receive Date: 20180827
  Receipt Date: 20180827
  Transmission Date: 20181010
  Serious: Yes (Hospitalization)
  Sender: FDA-Public Use
  Company Number: PHHY2016CA004742

PATIENT
  Age: 52 Year
  Sex: Male

DRUGS (5)
  1. SANDOSTATIN LAR DEPOT [Suspect]
     Active Substance: OCTREOTIDE ACETATE
     Dosage: 40 MG, Q2W (EVERY 2 WEEKS)
     Route: 030
  2. SANDOSTATIN LAR DEPOT [Suspect]
     Active Substance: OCTREOTIDE ACETATE
     Indication: NEUROENDOCRINE TUMOUR
     Dosage: 20 MG, QMO
     Route: 030
     Dates: start: 20151020
  3. SANDOSTATIN [Suspect]
     Active Substance: OCTREOTIDE ACETATE
     Indication: CARCINOID SYNDROME
     Dosage: 100 UG, BID
     Route: 058
     Dates: start: 20151020, end: 20151103
  4. SANDOSTATIN [Suspect]
     Active Substance: OCTREOTIDE ACETATE
     Indication: NEUROENDOCRINE TUMOUR
  5. SANDOSTATIN LAR DEPOT [Suspect]
     Active Substance: OCTREOTIDE ACETATE
     Indication: CARCINOID TUMOUR
     Dosage: 20 MG, Q2W (EVERY 2 WEEKS)
     Route: 030

REACTIONS (13)
  - Memory impairment [Unknown]
  - Incorrect drug administration duration [Unknown]
  - Malaise [Unknown]
  - Irritability [Unknown]
  - Depression [Unknown]
  - Confusional state [Unknown]
  - Blood pressure increased [Unknown]
  - Feeling abnormal [Unknown]
  - Pancreatic carcinoma [Unknown]
  - Blood glucose decreased [Unknown]
  - Lethargy [Unknown]
  - Malignant neoplasm progression [Unknown]
  - Blood glucose fluctuation [Unknown]

NARRATIVE: CASE EVENT DATE: 20160114
